FAERS Safety Report 12988490 (Version 1)
Quarter: 2016Q4

REPORT INFORMATION
  Report Type: Spontaneous
  Country: US (occurrence: US)
  Receive Date: 20161130
  Receipt Date: 20161130
  Transmission Date: 20170207
  Serious: No
  Sender: FDA-Public Use
  Company Number: GXBR2016US001134

PATIENT
  Age: 82 Year
  Sex: Male
  Weight: 65.77 kg

DRUGS (15)
  1. COMBIVENT [Concomitant]
     Active Substance: ALBUTEROL SULFATE\IPRATROPIUM BROMIDE
     Indication: CHRONIC OBSTRUCTIVE PULMONARY DISEASE
     Dosage: 1 DF, QID
     Route: 055
     Dates: start: 2014
  2. MULTI VIT [Concomitant]
     Indication: SUPPLEMENTATION THERAPY
     Dosage: UNK DF, QD
     Route: 048
     Dates: start: 2014
  3. LOSARTAN. [Concomitant]
     Active Substance: LOSARTAN
     Dosage: 25 MG, QD
     Route: 048
  4. FLONASE [Concomitant]
     Active Substance: FLUTICASONE PROPIONATE
     Indication: ASTHMA
     Dosage: 50 UG, QD2SDO
     Route: 055
     Dates: start: 201603
  5. FLONASE [Concomitant]
     Active Substance: FLUTICASONE PROPIONATE
     Indication: CHRONIC OBSTRUCTIVE PULMONARY DISEASE
  6. AMIODARONE HYDROCHLORIDE. [Suspect]
     Active Substance: AMIODARONE HYDROCHLORIDE
     Indication: VENTRICULAR ARRHYTHMIA
     Dosage: 200 MG, QD
     Route: 048
     Dates: start: 20150811, end: 20160310
  7. VITAMIN C [Concomitant]
     Active Substance: ASCORBIC ACID
     Indication: SUPPLEMENTATION THERAPY
     Dosage: 500 MG, QD
     Route: 048
     Dates: start: 2014
  8. METOPROLOL SUCCINATE. [Concomitant]
     Active Substance: METOPROLOL SUCCINATE
     Indication: CARDIAC FAILURE CONGESTIVE
     Dosage: 25 MG, QD
     Route: 048
     Dates: start: 201505
  9. SPIRONOLACTONE. [Concomitant]
     Active Substance: SPIRONOLACTONE
     Indication: CARDIAC FAILURE CONGESTIVE
     Dosage: 12.5 MG, QD
     Route: 048
     Dates: start: 201508
  10. VITAMIN E [Concomitant]
     Active Substance: .ALPHA.-TOCOPHEROL
     Indication: SUPPLEMENTATION THERAPY
     Dosage: 400 U, UNK
     Route: 048
     Dates: start: 2014
  11. FLOVENT [Concomitant]
     Active Substance: FLUTICASONE PROPIONATE
     Dosage: 250 UG, BID
     Route: 055
     Dates: start: 201412
  12. COZAAR [Concomitant]
     Active Substance: LOSARTAN POTASSIUM
     Indication: CARDIAC FAILURE CONGESTIVE
     Dosage: 25 MG, QD
     Route: 048
     Dates: start: 201602
  13. COUMADIN [Concomitant]
     Active Substance: WARFARIN SODIUM
     Indication: ATRIAL FIBRILLATION
     Dosage: 1.25 MG, SIX DAYS PER WEEK
     Route: 048
     Dates: start: 2015
  14. TORSEMIDE. [Concomitant]
     Active Substance: TORSEMIDE
     Indication: CARDIAC FAILURE CONGESTIVE
     Dosage: 5 MG, QD
     Route: 048
     Dates: start: 201602
  15. TYLENOL [Concomitant]
     Active Substance: ACETAMINOPHEN
     Indication: PAIN
     Dosage: 650 MG, BID
     Route: 048
     Dates: start: 20160310

REACTIONS (14)
  - Lethargy [Not Recovered/Not Resolved]
  - Amnesia [Not Recovered/Not Resolved]
  - Fluid retention [Not Recovered/Not Resolved]
  - Heart rate decreased [Unknown]
  - Feeling cold [Recovering/Resolving]
  - Cyanosis [Unknown]
  - Vision blurred [Recovering/Resolving]
  - Tremor [Recovering/Resolving]
  - Pain [Not Recovered/Not Resolved]
  - Weight decreased [Unknown]
  - Peripheral swelling [Not Recovered/Not Resolved]
  - Hypotension [Recovering/Resolving]
  - Rash pruritic [Recovering/Resolving]
  - Dyspnoea [Recovering/Resolving]

NARRATIVE: CASE EVENT DATE: 201508
